FAERS Safety Report 6969655-1 (Version None)
Quarter: 2010Q3

REPORT INFORMATION
  Report Type: 
  Country: None (occurrence: None)
  Receive Date: 20100902
  Receipt Date: 20100825
  Transmission Date: 20110219
  Serious: Yes (Hospitalization)
  Sender: FDA-Public Use
  Company Number: TPA2010A04725

PATIENT
  Sex: Female

DRUGS (2)
  1. ACTOS [Suspect]
     Indication: TYPE 2 DIABETES MELLITUS
  2. JANUVIA [Concomitant]

REACTIONS (2)
  - ANAPHYLACTIC SHOCK [None]
  - DYSPHAGIA [None]
